FAERS Safety Report 17326228 (Version 2)
Quarter: 2020Q2

REPORT INFORMATION
  Report Type: Spontaneous
  Country: FI (occurrence: FI)
  Receive Date: 20200127
  Receipt Date: 20200403
  Transmission Date: 20200713
  Serious: Yes (Other)
  Sender: FDA-Public Use
  Company Number: FI-PFIZER INC-2020034028

PATIENT
  Age: 73 Year
  Sex: Female

DRUGS (12)
  1. MEDROL [Concomitant]
     Active Substance: METHYLPREDNISOLONE
     Dosage: 4 MG, 1X/DAY
  2. PANADOL [Concomitant]
     Active Substance: ACETAMINOPHEN
  3. OXIKLORIN [Concomitant]
     Active Substance: HYDROXYCHLOROQUINE SULFATE
     Dosage: 300 MG, 1X/DAY
  4. ORMOX [Concomitant]
  5. XELJANZ [Suspect]
     Active Substance: TOFACITINIB CITRATE
     Indication: RHEUMATOID ARTHRITIS
     Dosage: 5 MG, 2X/DAY
     Route: 048
     Dates: start: 201901, end: 20190801
  6. LIXIANA [Concomitant]
     Active Substance: EDOXABAN TOSYLATE
  7. CALCICHEW D3 FORTE [Concomitant]
     Active Substance: CALCIUM\CHOLECALCIFEROL
  8. EMCONCOR [Concomitant]
     Active Substance: BISOPROLOL FUMARATE
  9. THYROXIN [Concomitant]
     Active Substance: LEVOTHYROXINE
  10. NORSPAN [Concomitant]
     Active Substance: BUPRENORPHINE
  11. PROLIA [Concomitant]
     Active Substance: DENOSUMAB
  12. FURESIS [Concomitant]
     Active Substance: FUROSEMIDE

REACTIONS (1)
  - Erysipelas [Unknown]
